FAERS Safety Report 8023234-6 (Version None)
Quarter: 2012Q1

REPORT INFORMATION
  Report Type: 
  Country: None (occurrence: None)
  Receive Date: 20120104
  Receipt Date: 20111227
  Transmission Date: 20120608
  Serious: Yes (Hospitalization, Other)
  Sender: FDA-Public Use
  Company Number: BR-ABBOTT-11P-020-0887230-00

PATIENT

DRUGS (12)
  1. RINOSORO [Suspect]
     Indication: PRODUCT USED FOR UNKNOWN INDICATION
     Route: 045
  2. VERAPAMIL [Suspect]
     Indication: ARRHYTHMIA
  3. UNSPECIFIED DRUG [Suspect]
     Indication: PRODUCT USED FOR UNKNOWN INDICATION
  4. SYNTHROID [Suspect]
  5. METICORTEN [Suspect]
     Indication: PRODUCT USED FOR UNKNOWN INDICATION
  6. SYNTHROID [Suspect]
     Indication: THYROID DISORDER
  7. VERAPAMIL [Suspect]
  8. METICORTEN [Suspect]
  9. DIOVAN [Concomitant]
     Indication: PRODUCT USED FOR UNKNOWN INDICATION
  10. OMEPRAZOLE [Concomitant]
     Indication: PRODUCT USED FOR UNKNOWN INDICATION
  11. DIGESAN [Concomitant]
     Indication: PRODUCT USED FOR UNKNOWN INDICATION
  12. METICORTEN [Suspect]

REACTIONS (14)
  - TREMOR [None]
  - SOMNOLENCE [None]
  - COUGH [None]
  - DRUG PRESCRIBING ERROR [None]
  - ARRHYTHMIA [None]
  - OROPHARYNGEAL PAIN [None]
  - INFECTION [None]
  - FUNGAL INFECTION [None]
  - ORAL CANDIDIASIS [None]
  - IMMUNODEFICIENCY [None]
  - HEART RATE INCREASED [None]
  - BLOOD PRESSURE INCREASED [None]
  - ASTHENIA [None]
  - GAIT DISTURBANCE [None]
